FAERS Safety Report 23779128 (Version 1)
Quarter: 2024Q2

REPORT INFORMATION
  Report Type: Spontaneous
  Country: CN (occurrence: CN)
  Receive Date: 20240424
  Receipt Date: 20240424
  Transmission Date: 20240716
  Serious: Yes (Hospitalization, Other)
  Sender: FDA-Public Use
  Company Number: CN-009507513-2404CHN009604

PATIENT
  Age: 72 Year
  Sex: Female
  Weight: 49 kg

DRUGS (3)
  1. JANUMET [Suspect]
     Active Substance: METFORMIN HYDROCHLORIDE\SITAGLIPTIN PHOSPHATE
     Indication: Diabetes mellitus
     Dosage: 1 TABLET, BID
     Route: 048
     Dates: start: 20230401, end: 20240415
  2. GLICLAZIDE [Suspect]
     Active Substance: GLICLAZIDE
     Indication: Blood glucose abnormal
     Dosage: 60 MG, QD
     Route: 048
     Dates: start: 20230401, end: 20240415
  3. AZILSARTAN MEDOXOMIL POTASSIUM [Concomitant]
     Indication: Hypertension
     Dosage: 80 MG, QD
     Route: 048
     Dates: start: 20230401, end: 20240415

REACTIONS (7)
  - Hypoglycaemic coma [Recovered/Resolved]
  - Acute kidney injury [Unknown]
  - Deafness [Unknown]
  - Blindness [Unknown]
  - Diabetes mellitus [Unknown]
  - Hypertension [Unknown]
  - Anxiety [Unknown]

NARRATIVE: CASE EVENT DATE: 20240415
